FAERS Safety Report 8687995 (Version 11)
Quarter: 2012Q4

REPORT INFORMATION
  Report Type: Report from Study
  Country: GB (occurrence: GB)
  Receive Date: 20120727
  Receipt Date: 20121214
  Transmission Date: 20130627
  Serious: Yes (Life-Threatening, Hospitalization)
  Sender: FDA-Public Use
  Company Number: GB-ROCHE-1089203

PATIENT
  Age: 71 Year
  Sex: Female
  Weight: 60.5 kg

DRUGS (10)
  1. PERTUZUMAB [Suspect]
     Indication: BREAST CANCER
     Dosage: Last dose prior to SAE:09/Jul/2012
     Route: 042
     Dates: start: 20120709
  2. PERTUZUMAB [Suspect]
     Dosage: Last dose prior to SAE:30/Jul/2012
     Route: 042
     Dates: start: 20120730, end: 20120824
  3. ADO-TRASTUZUMAB EMTANSINE [Suspect]
     Indication: BREAST CANCER
     Dosage: Last dose prior to SAE: 30/Jul/2012
     Route: 042
     Dates: start: 20120709, end: 20120824
  4. DOCETAXEL [Suspect]
     Indication: BREAST CANCER
     Dosage: last dose prior to sae:30/Jul/2012
     Route: 042
     Dates: start: 20120709, end: 20120824
  5. FILGRASTIM [Suspect]
     Indication: PRODUCT USED FOR UNKNOWN INDICATION
     Route: 065
     Dates: start: 20120710, end: 20120710
  6. CORSODYL MOUTHWASH [Concomitant]
  7. DOMPERIDONE [Concomitant]
     Route: 065
     Dates: start: 20120716, end: 20120716
  8. DIGOXIN [Concomitant]
     Route: 065
     Dates: start: 20120902, end: 20120907
  9. ORAMORPH [Concomitant]
     Route: 065
     Dates: start: 20120901, end: 20120907
  10. LEVOMEPROMAZINE [Concomitant]
     Route: 065
     Dates: start: 20120902, end: 20120914

REACTIONS (4)
  - Thrombocytopenia [Recovered/Resolved]
  - Haematemesis [Recovered/Resolved]
  - Uterine polyp [Recovered/Resolved]
  - Fatigue [Recovered/Resolved]
